FAERS Safety Report 8308240-6 (Version None)
Quarter: 2012Q2

REPORT INFORMATION
  Report Type: 
  Country: None (occurrence: None)
  Receive Date: 20120424
  Receipt Date: 20120410
  Transmission Date: 20120825
  Serious: Yes (Other)
  Sender: FDA-Public Use
  Company Number: US-WATSON-2012-04127

PATIENT
  Age: 36 Year
  Sex: Female

DRUGS (1)
  1. BACLOFEN [Suspect]
     Indication: BLADDER DYSFUNCTION
     Dosage: 15 MG, DAILY (5 MG 3X/DAY)
     Route: 048

REACTIONS (5)
  - DRUG LEVEL INCREASED [None]
  - PSYCHOTIC DISORDER [None]
  - NEUROTOXICITY [None]
  - RESPIRATORY PARALYSIS [None]
  - KIDNEY TRANSPLANT REJECTION [None]
